FAERS Safety Report 7802649-2 (Version None)
Quarter: 2011Q4

REPORT INFORMATION
  Report Type: 
  Country: None (occurrence: None)
  Receive Date: 20111007
  Receipt Date: 20110926
  Transmission Date: 20120403
  Serious: Yes (Hospitalization, Other)
  Sender: FDA-Public Use
  Company Number: PHHY2011GB20953

PATIENT
  Age: 36 Year
  Sex: Female

DRUGS (7)
  1. OXCARBAZEPINE [Suspect]
     Dosage: 1350 MG, DAILY
  2. LACOSAMIDE [Interacting]
     Dosage: 200 MG/DAY
  3. OXCARBAZEPINE [Interacting]
     Dosage: 300 MG, DAILY
  4. PHENYTOIN [Interacting]
     Dosage: 150 MG/DAY
  5. TOPIRAMATE [Interacting]
     Indication: EPILEPSY
     Dosage: 250 MG, DAILY
     Route: 048
  6. LACOSAMIDE [Interacting]
     Indication: CONVULSION
     Dosage: 100 MG/DAY
  7. OXCARBAZEPINE [Interacting]
     Dosage: 1200 MG, DAILY

REACTIONS (6)
  - NEUROTOXICITY [None]
  - CONVULSION [None]
  - ANTICONVULSANT DRUG LEVEL DECREASED [None]
  - BALANCE DISORDER [None]
  - DRUG INTERACTION [None]
  - DIPLOPIA [None]
